FAERS Safety Report 9098875 (Version 1)
Quarter: 2013Q1

REPORT INFORMATION
  Report Type: Spontaneous
  Country: GB (occurrence: GB)
  Receive Date: 20130214
  Receipt Date: 20130214
  Transmission Date: 20140127
  Serious: Yes (Hospitalization)
  Sender: FDA-Public Use
  Company Number: PHHY2013GB013178

PATIENT
  Age: 68 Year
  Sex: Female
  Weight: 97 kg

DRUGS (11)
  1. METFORMIN [Suspect]
     Indication: TYPE 1 DIABETES MELLITUS
     Dosage: 1.5 G, QD
     Route: 051
     Dates: start: 20030408, end: 20120725
  2. PERINDOPRIL [Concomitant]
     Dosage: 4 MG, BID
     Dates: start: 2002
  3. FUROSEMIDE [Concomitant]
     Dosage: 40 MG, QD
     Dates: start: 2005
  4. AMLODIPINE [Concomitant]
     Dosage: 5 MG, QD
     Dates: start: 2005
  5. ATENOLOL [Concomitant]
     Dates: start: 2005
  6. FERROUS SULPHATE [Concomitant]
     Dosage: 200 MG, QD
  7. CETIRIZINE [Concomitant]
     Dosage: 10 MG, QD
  8. HYDROXYZINE [Concomitant]
     Dosage: 25 MG, TID
  9. AMITRIPTYLINE [Concomitant]
     Dosage: 10 MG, QD, AT NIGHT
  10. HUMULIN [Concomitant]
  11. SIMVASTATIN [Concomitant]
     Dosage: 10 MG, QD

REACTIONS (4)
  - Renal failure acute [Recovered/Resolved]
  - Dysarthria [Recovered/Resolved]
  - Hypotension [Recovered/Resolved]
  - Malaise [Unknown]
